FAERS Safety Report 23630164 (Version 1)
Quarter: 2024Q1

REPORT INFORMATION
  Report Type: Spontaneous
  Country: US (occurrence: US)
  Receive Date: 20240314
  Receipt Date: 20240314
  Transmission Date: 20240409
  Serious: No
  Sender: FDA-Public Use
  Company Number: US-TARO PHARMACEUTICALS USA INC.-2024TAR00109

PATIENT

DRUGS (2)
  1. TRETINOIN [Suspect]
     Active Substance: TRETINOIN
     Indication: Acne
     Dosage: UNK, APPLY A THIN FILM TO AFFECTED AREA, APPLIES CLINDAMYCIN IN THE MORNING + TRETINOIN AT NIGHT
     Route: 061
     Dates: start: 20231218
  2. TRETINOIN [Suspect]
     Active Substance: TRETINOIN
     Indication: Bacterial infection
     Dosage: 1X EVERY OTHER DAY APPLICATION, QOD
     Route: 061
     Dates: start: 202401, end: 202401

REACTIONS (4)
  - Skin burning sensation [Not Recovered/Not Resolved]
  - Application site haemorrhage [Not Recovered/Not Resolved]
  - Skin exfoliation [Not Recovered/Not Resolved]
  - Facial discomfort [Unknown]

NARRATIVE: CASE EVENT DATE: 20231201
